FAERS Safety Report 9695725 (Version 1)
Quarter: 2013Q4

REPORT INFORMATION
  Report Type: Spontaneous
  Country: US (occurrence: None)
  Receive Date: 20131118
  Receipt Date: 20131118
  Transmission Date: 20140711
  Serious: Yes (Hospitalization)
  Sender: FDA-Public Use
  Company Number: None

PATIENT
  Age: 56 Year
  Sex: Male
  Weight: 111.13 kg

DRUGS (4)
  1. METFORMIN [Suspect]
     Indication: TYPE 2 DIABETES MELLITUS
     Dosage: 1 TAB BID OREAL
  2. OMEPRAZOLE [Concomitant]
  3. PROPRANOLOL [Concomitant]
  4. SILDENAFIL CITRATE [Concomitant]

REACTIONS (4)
  - Rash erythematous [None]
  - Pain in extremity [None]
  - Oedema peripheral [None]
  - Pruritus [None]
